FAERS Safety Report 19063665 (Version 1)
Quarter: 2021Q1

REPORT INFORMATION
  Report Type: Spontaneous
  Country: US (occurrence: US)
  Receive Date: 20210326
  Receipt Date: 20210326
  Transmission Date: 20210420
  Serious: No
  Sender: FDA-Public Use
  Company Number: US-PFIZER INC-2021289841

PATIENT
  Age: 78 Year
  Sex: Female

DRUGS (1)
  1. LYRICA CR [Suspect]
     Active Substance: PREGABALIN
     Indication: NERVE INJURY
     Dosage: 82.5 MG

REACTIONS (3)
  - Product residue present [Unknown]
  - Drug effective for unapproved indication [Unknown]
  - Off label use [Unknown]
